FAERS Safety Report 5873513-3 (Version None)
Quarter: 2008Q3

REPORT INFORMATION
  Report Type: 
  Country: None (occurrence: None)
  Receive Date: 20080908
  Receipt Date: 20080829
  Transmission Date: 20090109
  Serious: Yes (Hospitalization)
  Sender: FDA-Public Use
  Company Number: JP-JNJFOC-20080301953

PATIENT
  Age: 64 Year
  Sex: Female

DRUGS (8)
  1. ITRIZOLE [Suspect]
     Route: 041
  2. ITRIZOLE [Suspect]
     Route: 041
  3. ITRIZOLE [Suspect]
     Indication: INFECTION
     Route: 041
  4. MEROPEN [Suspect]
     Route: 041
  5. MEROPEN [Suspect]
     Indication: INFECTION
     Route: 041
  6. NEUTROGIN [Concomitant]
     Dosage: THE DOSE IS 1 DF
     Route: 058
  7. COTRIM [Concomitant]
     Route: 048
  8. PAZUCROSS [Concomitant]
     Indication: FEBRILE NEUTROPENIA
     Dosage: THE DOSE IS 2 DF
     Route: 042

REACTIONS (2)
  - ECZEMA [None]
  - PYREXIA [None]
